FAERS Safety Report 10623743 (Version 1)
Quarter: 2014Q4

REPORT INFORMATION
  Report Type: Spontaneous
  Country: US (occurrence: US)
  Receive Date: 20141203
  Receipt Date: 20141203
  Transmission Date: 20150529
  Serious: No
  Sender: FDA-Public Use
  Company Number: US-SA-2013SA116652

PATIENT
  Age: 74 Year
  Sex: Male

DRUGS (1)
  1. RENVELA [Suspect]
     Active Substance: SEVELAMER CARBONATE
     Indication: HYPERPHOSPHATAEMIA
     Dosage: 3 TABLETS WITH MEALS AND SOME WITH SNACKS
     Route: 048
     Dates: start: 2011

REACTIONS (3)
  - Malabsorption [Not Recovered/Not Resolved]
  - Hyperphosphataemia [Unknown]
  - Weight decreased [Not Recovered/Not Resolved]
